FAERS Safety Report 7898984-2 (Version None)
Quarter: 2011Q4

REPORT INFORMATION
  Report Type: 
  Country: None (occurrence: None)
  Receive Date: 20111107
  Receipt Date: 20100303
  Transmission Date: 20120403
  Serious: No
  Sender: FDA-Public Use
  Company Number: US-BAYER-201015610NA

PATIENT
  Age: 93 Year
  Sex: Female

DRUGS (1)
  1. CLIMARA [Suspect]
     Indication: HOT FLUSH
     Dosage: 0.025 MG, UNK (CHANGE PATCH EVERY 7 DAYS)
     Route: 062

REACTIONS (1)
  - HOT FLUSH [None]
